FAERS Safety Report 10265797 (Version 1)
Quarter: 2014Q2

REPORT INFORMATION
  Report Type: Spontaneous
  Country: US (occurrence: None)
  Receive Date: 20140625
  Receipt Date: 20140625
  Transmission Date: 20141212
  Serious: No
  Sender: FDA-Public Use
  Company Number: None

PATIENT
  Age: 79 Year
  Sex: Female
  Weight: 51.26 kg

DRUGS (7)
  1. LEVOFLOXACIN [Suspect]
     Indication: CYSTITIS
     Dosage: 500 MG 7 PILLS 1 DAILY MOUTH
     Route: 048
     Dates: start: 20140415, end: 20140422
  2. SIMVASTATIN [Concomitant]
  3. LISINOPRIL [Concomitant]
  4. L-THYROXINE [Concomitant]
  5. ESTRING [Concomitant]
  6. MULTIVITAMIN [Concomitant]
  7. FISH OIL [Concomitant]

REACTIONS (5)
  - Pruritus generalised [None]
  - Scratch [None]
  - Skin haemorrhage [None]
  - Scab [None]
  - Rash macular [None]
